FAERS Safety Report 4367185-7 (Version None)
Quarter: 2004Q2

REPORT INFORMATION
  Report Type: 
  Country: None (occurrence: None)
  Receive Date: 20040528
  Receipt Date: 20040427
  Transmission Date: 20050107
  Serious: Yes (Hospitalization)
  Sender: FDA-Public Use
  Company Number: PHNU2004DE01619

PATIENT
  Age: 67 Year
  Sex: Male
  Weight: 83 kg

DRUGS (9)
  1. SANDIMMUNE [Suspect]
     Indication: RENAL TRANSPLANT
     Dosage: 300MG/DAY
     Dates: start: 19960101
  2. VOLTAREN [Suspect]
     Indication: ARTHRITIS
     Dosage: 1 DF, ONCE/SINGLE
     Dates: start: 20030304, end: 20030304
  3. PREDNISOLONE [Concomitant]
     Dosage: 20MG/DAY
     Route: 048
     Dates: start: 20030305, end: 20030320
  4. PREDNISOLONE [Concomitant]
     Dosage: 7.5MG/DAY
     Dates: start: 20030321
  5. METOPROLOL TARTRATE [Concomitant]
     Dosage: 95 MG, QD
     Route: 048
     Dates: start: 19960101
  6. DIHYDRALAZINE [Concomitant]
     Dosage: 50 MG, QD
     Route: 048
     Dates: start: 19960101
  7. DOXAZOSIN [Concomitant]
     Dosage: 2 MG, QD
     Route: 048
     Dates: start: 20020101
  8. FOSINOPRIL SODIUM [Concomitant]
     Dosage: 20 MG, QD
     Route: 048
     Dates: start: 19980101, end: 20030509
  9. AMLODIPINE [Concomitant]
     Dosage: 5 MG, QD
     Route: 048
     Dates: start: 19980101

REACTIONS (5)
  - BLOOD CREATININE INCREASED [None]
  - DYSPNOEA [None]
  - HYPERSENSITIVITY [None]
  - NAUSEA [None]
  - PRURITUS [None]
